FAERS Safety Report 19532446 (Version 1)
Quarter: 2021Q3

REPORT INFORMATION
  Report Type: Other
  Country: US (occurrence: US)
  Receive Date: 20210713
  Receipt Date: 20210713
  Transmission Date: 20211014
  Serious: Yes (Other)
  Sender: FDA-Public Use
  Company Number: US-DEXPHARM-20211072

PATIENT
  Age: 74 Year
  Sex: Female

DRUGS (7)
  1. HYDROXYCHLOROQUINE [Concomitant]
     Active Substance: HYDROXYCHLOROQUINE
     Indication: SYSTEMIC LUPUS ERYTHEMATOSUS
  2. AMLODIPINE [Interacting]
     Active Substance: AMLODIPINE BESYLATE
  3. AMLODIPINE [Suspect]
     Active Substance: AMLODIPINE BESYLATE
  4. OMEPRAZOLE. [Interacting]
     Active Substance: OMEPRAZOLE
  5. PANTOPRAZOLE [Interacting]
     Active Substance: PANTOPRAZOLE
  6. PREDNISONE. [Concomitant]
     Active Substance: PREDNISONE
     Indication: SYSTEMIC LUPUS ERYTHEMATOSUS
     Dosage: AS NECESSARY
  7. OMEPRAZOLE. [Interacting]
     Active Substance: OMEPRAZOLE

REACTIONS (2)
  - Subacute cutaneous lupus erythematosus [Unknown]
  - Drug interaction [Recovered/Resolved]
